FAERS Safety Report 11121119 (Version 1)
Quarter: 2015Q2

REPORT INFORMATION
  Report Type: Spontaneous
  Country: None (occurrence: None)
  Receive Date: 20150515
  Receipt Date: 20150515
  Transmission Date: 20150821
  Serious: Yes (Other)
  Sender: FDA-Public Use
  Company Number: MA-20150001

PATIENT
  Age: 62 Year
  Sex: Female

DRUGS (4)
  1. CISPLATIN. [Concomitant]
     Active Substance: CISPLATIN
  2. GELATIN SPONGE PARTICLES (GELATIN) [Concomitant]
  3. LIPIODOL ULTRA-FLUIDE [Suspect]
     Active Substance: ETHIODIZED OIL
     Indication: TRANSCATHETER ARTERIAL CHEMOEMBOLISATION
     Route: 013
  4. DOXORUBICIN [Concomitant]
     Active Substance: DOXORUBICIN

REACTIONS (9)
  - Spinal cord ischaemia [None]
  - Metastases to lung [None]
  - Sensory loss [None]
  - Muscular weakness [None]
  - Overdose [None]
  - Hyperreflexia [None]
  - Urinary retention [None]
  - Off label use [None]
  - Product use issue [None]
